FAERS Safety Report 13511733 (Version 1)
Quarter: 2017Q2

REPORT INFORMATION
  Report Type: Spontaneous
  Country: US (occurrence: US)
  Receive Date: 20170503
  Receipt Date: 20170503
  Transmission Date: 20170830
  Serious: Yes (Death)
  Sender: FDA-Public Use
  Company Number: None

PATIENT
  Age: 48 Year
  Sex: Male
  Weight: 157.5 kg

DRUGS (10)
  1. BENZTROPINE [Concomitant]
     Active Substance: BENZTROPINE
  2. COOFFEE [Concomitant]
  3. ATORVASTATIN [Concomitant]
     Active Substance: ATORVASTATIN
  4. CLONAZEPAM. [Concomitant]
     Active Substance: CLONAZEPAM
  5. METOPROLOL. [Concomitant]
     Active Substance: METOPROLOL
  6. TRAMADOL. [Concomitant]
     Active Substance: TRAMADOL
  7. TRINTELLIX [Suspect]
     Active Substance: VORTIOXETINE HYDROBROMIDE
     Indication: DEPRESSION
     Dosage: ?          QUANTITY:1 TABLET(S);?
     Route: 048
  8. CLOZAPINE. [Concomitant]
     Active Substance: CLOZAPINE
  9. TRAZODONE [Concomitant]
     Active Substance: TRAZODONE HYDROCHLORIDE
  10. COLA DRINKS [Concomitant]

REACTIONS (2)
  - Gun shot wound [None]
  - Completed suicide [None]

NARRATIVE: CASE EVENT DATE: 20170427
